FAERS Safety Report 6507747-1 (Version None)
Quarter: 2009Q4

REPORT INFORMATION
  Report Type: 
  Country: None (occurrence: None)
  Receive Date: 20091221
  Receipt Date: 20091210
  Transmission Date: 20100525
  Serious: Yes (Death, Life-Threatening, Hospitalization)
  Sender: FDA-Public Use
  Company Number: JP-PFIZER INC-2009309003

PATIENT
  Age: 80 Year

DRUGS (19)
  1. ARGATROBAN [Suspect]
     Indication: HEPARIN-INDUCED THROMBOCYTOPENIA
     Dosage: 1.06 UG/KG, 1 IN 1 MIN
     Route: 041
     Dates: start: 20090428, end: 20090429
  2. ARGATROBAN [Suspect]
     Dosage: 0.92 UG/KG, 1 IN 1 MIN
     Route: 041
     Dates: start: 20090429, end: 20090430
  3. ARGATROBAN [Suspect]
     Dosage: 0.84 UG/KG, 1 IN 1 MIN
     Route: 041
     Dates: start: 20090430, end: 20090501
  4. ARGATROBAN [Suspect]
     Dosage: 0.87 UG/KG, 1 IN 1 MIN
     Route: 041
     Dates: start: 20090501, end: 20090502
  5. ARGATROBAN [Suspect]
     Dosage: 0.86 UG/KG, 1 IN 1 MIN
     Route: 041
     Dates: start: 20090502, end: 20090515
  6. ARGATROBAN [Suspect]
     Dosage: 0.87 UG/KG, 1 IN 1 MIN
     Route: 041
     Dates: start: 20090515, end: 20090519
  7. ARGATROBAN [Suspect]
     Dosage: 0.79 UG/KG, 1 IN 1 MIN
     Route: 041
     Dates: start: 20090519, end: 20090528
  8. ARGATROBAN [Suspect]
     Dosage: 0.7 UG/KG, 1 IN 1 MIN
     Route: 041
     Dates: start: 20090528, end: 20090531
  9. ARGATROBAN [Suspect]
     Dosage: 0.7 UG/KG, 1 IN 1 MIN
     Route: 041
     Dates: start: 20090531, end: 20090603
  10. PREDNISOLONE AND PREDNISOLONE STEAGLATE [Suspect]
     Dosage: 17.5 MG, 1X/DAY
     Route: 048
  11. HEPARIN SODIUM [Concomitant]
     Dosage: UNK
     Route: 051
     Dates: start: 20090410
  12. ROCEPHIN [Concomitant]
     Dosage: 1 G, UNK
     Route: 042
     Dates: start: 20090529, end: 20090603
  13. DIOVAN [Concomitant]
     Dosage: 80 MG, UNK
     Route: 048
  14. AMLODIN [Concomitant]
     Dosage: 10 MG, UNK
     Route: 048
  15. CALCIUM CARBONATE [Concomitant]
     Dosage: 4.5 MG, UNK
     Route: 048
  16. ALFAROL [Concomitant]
     Dosage: 0.25 MCG, UNK
     Route: 048
  17. OMEPRAL [Concomitant]
     Dosage: 20 MG, UNK
     Route: 048
  18. LASIX [Concomitant]
     Dosage: 80 MG, UNK
     Route: 048
  19. VFEND [Concomitant]
     Dosage: 300 MG, UNK
     Route: 048

REACTIONS (3)
  - BRONCHOPNEUMONIA [None]
  - GASTROINTESTINAL HAEMORRHAGE [None]
  - PULMONARY ALVEOLAR HAEMORRHAGE [None]
